FAERS Safety Report 4822301-5 (Version None)
Quarter: 2005Q4

REPORT INFORMATION
  Report Type: 
  Country: None (occurrence: None)
  Receive Date: 20051103
  Receipt Date: 20051014
  Transmission Date: 20060501
  Serious: Yes (Hospitalization, Other)
  Sender: FDA-Public Use
  Company Number: USA041286254

PATIENT
  Age: 69 Year
  Sex: Female
  Weight: 43 kg

DRUGS (1)
  1. HUMATROPE [Suspect]
     Indication: PITUITARY TUMOUR
     Dosage: 0.4 MG/1 DAY
     Dates: start: 19980101

REACTIONS (15)
  - ANXIETY [None]
  - APATHY [None]
  - ASTHENIA [None]
  - BLOOD SODIUM DECREASED [None]
  - BONE PAIN [None]
  - DRUG INEFFECTIVE [None]
  - INSOMNIA [None]
  - MALAISE [None]
  - MYALGIA [None]
  - OVERDOSE [None]
  - PAIN [None]
  - PHARMACEUTICAL PRODUCT COMPLAINT [None]
  - SWELLING [None]
  - TREATMENT NONCOMPLIANCE [None]
  - WEIGHT INCREASED [None]
